FAERS Safety Report 9845311 (Version 1)
Quarter: 2014Q1

REPORT INFORMATION
  Report Type: Spontaneous
  Country: US (occurrence: US)
  Receive Date: 20140127
  Receipt Date: 20140127
  Transmission Date: 20141002
  Serious: Yes (Death, Hospitalization)
  Sender: FDA-Public Use
  Company Number: US-SA-2014SA007353

PATIENT
  Age: 65 Year
  Sex: Male

DRUGS (13)
  1. ETHAMBUTOL [Suspect]
     Indication: TUBERCULOSIS
     Route: 065
  2. RIFAMPICIN [Suspect]
     Indication: TUBERCULOSIS
     Route: 065
  3. MOXIFLOXACIN HYDROCHLORIDE [Suspect]
     Indication: TUBERCULOSIS
     Route: 065
  4. EPIRUBICIN [Suspect]
     Indication: HEPATOCELLULAR CARCINOMA
     Route: 065
  5. TRAMADOL [Concomitant]
  6. IPRATROPIUM BROMIDE/SALBUTAMOL SULFATE [Concomitant]
     Dosage: ALBUTEROL 90 MCG/IPRATROPIUM1MCG, 2 PUFFS
  7. OMEPRAZOLE [Concomitant]
  8. AMLODIPINE BESILATE [Concomitant]
  9. COLCHICINE [Concomitant]
  10. COLCHICINE [Concomitant]
  11. CEFTRIAXONE [Concomitant]
  12. VANCOMYCIN [Concomitant]
  13. CIPROFLOXACIN [Concomitant]

REACTIONS (8)
  - Liver disorder [Fatal]
  - Condition aggravated [Fatal]
  - Hepatic failure [Fatal]
  - Tuberculosis [Recovering/Resolving]
  - Arthritis bacterial [Recovered/Resolved]
  - Joint effusion [Recovered/Resolved]
  - Arthralgia [Recovered/Resolved]
  - Joint swelling [Recovered/Resolved]
